FAERS Safety Report 24528053 (Version 1)
Quarter: 2024Q4

REPORT INFORMATION
  Report Type: Spontaneous
  Country: US (occurrence: None)
  Receive Date: 20241018
  Receipt Date: 20241018
  Transmission Date: 20250115
  Serious: No
  Sender: Public
  Company Number: None

PATIENT
  Age: 57 Year
  Sex: Male
  Weight: 92 kg

DRUGS (1)
  1. APIXABAN [Suspect]
     Active Substance: APIXABAN
     Indication: Deep vein thrombosis
     Dates: start: 20240304, end: 20240325

REACTIONS (4)
  - Gastrointestinal haemorrhage [None]
  - Abdominal pain upper [None]
  - Haematemesis [None]
  - Nausea [None]

NARRATIVE: CASE EVENT DATE: 20240325
